FAERS Safety Report 8584846-4 (Version None)
Quarter: 2012Q3

REPORT INFORMATION
  Report Type: 
  Country: None (occurrence: None)
  Receive Date: 20120810
  Receipt Date: 20120803
  Transmission Date: 20120928
  Serious: Yes (Hospitalization, Other)
  Sender: FDA-Public Use
  Company Number: FR-JNJFOC-20120613786

PATIENT
  Sex: Male
  Weight: 52 kg

DRUGS (6)
  1. GANCICLOVIR SODIUM [Suspect]
     Indication: CYTOMEGALOVIRUS INFECTION
     Route: 042
     Dates: start: 20120531, end: 20120609
  2. ETHAMBUTOL HYDROCHLORIDE [Concomitant]
     Indication: TUBERCULOSIS
     Route: 048
     Dates: start: 20120415, end: 20120522
  3. MOXIFLOXACIN HCL [Concomitant]
     Indication: TUBERCULOSIS
     Route: 048
     Dates: start: 20120524
  4. RIMIFON [Concomitant]
     Indication: TUBERCULOSIS
     Route: 048
     Dates: start: 20120415
  5. INTELENCE [Suspect]
     Indication: HIV INFECTION
     Route: 048
     Dates: start: 20120531, end: 20120611
  6. PYRAZINAMIDE [Concomitant]
     Indication: TUBERCULOSIS
     Route: 048
     Dates: start: 20120415

REACTIONS (1)
  - DRUG ERUPTION [None]
